FAERS Safety Report 21107910 (Version 1)
Quarter: 2022Q3

REPORT INFORMATION
  Report Type: Spontaneous
  Country: US (occurrence: US)
  Receive Date: 20220720
  Receipt Date: 20220720
  Transmission Date: 20221027
  Serious: No
  Sender: FDA-Public Use
  Company Number: US-SA-SAC20220718000685

PATIENT
  Age: 13 Year
  Sex: Female

DRUGS (24)
  1. DUPIXENT [Suspect]
     Active Substance: DUPILUMAB
     Indication: Dermatitis atopic
     Dosage: 200 MG, QOW
     Route: 058
     Dates: start: 20200430
  2. ARIPIPRAZOLE [Concomitant]
     Active Substance: ARIPIPRAZOLE
  3. ARIPIPRAZOLE [Concomitant]
     Active Substance: ARIPIPRAZOLE
  4. AZELASTINE [Concomitant]
     Active Substance: AZELASTINE
  5. AZELASTINE [Concomitant]
     Active Substance: AZELASTINE
     Dosage: SPRAY
  6. ESCITALOPRAM [Concomitant]
     Active Substance: ESCITALOPRAM OXALATE
  7. ESCITALOPRAM [Concomitant]
     Active Substance: ESCITALOPRAM OXALATE
  8. FLUTICASONE [Concomitant]
     Active Substance: FLUTICASONE
  9. FLUTICASONE [Concomitant]
     Active Substance: FLUTICASONE
     Dosage: SPRAY
  10. GUANFACINE [Concomitant]
     Active Substance: GUANFACINE
  11. GUANFACINE [Concomitant]
     Active Substance: GUANFACINE
  12. LORATADINE [Concomitant]
     Active Substance: LORATADINE
  13. LORATADINE [Concomitant]
     Active Substance: LORATADINE
  14. MONTELUKAST SODIUM [Concomitant]
     Active Substance: MONTELUKAST SODIUM
  15. MONTELUKAST SODIUM [Concomitant]
     Active Substance: MONTELUKAST SODIUM
  16. OLANZAPINE [Concomitant]
     Active Substance: OLANZAPINE
  17. OLANZAPINE [Concomitant]
     Active Substance: OLANZAPINE
  18. PROAIR HFA [Concomitant]
     Active Substance: ALBUTEROL SULFATE
  19. PROAIR HFA [Concomitant]
     Active Substance: ALBUTEROL SULFATE
  20. SERTRALINE [Concomitant]
     Active Substance: SERTRALINE HYDROCHLORIDE
  21. SERTRALINE [Concomitant]
     Active Substance: SERTRALINE HYDROCHLORIDE
  22. ALTAVERA [Concomitant]
     Active Substance: ETHINYL ESTRADIOL\LEVONORGESTREL
  23. OXCARBAZEPINE [Concomitant]
     Active Substance: OXCARBAZEPINE
  24. POLYETHYLENE GLYCOL 3350 [Concomitant]
     Active Substance: POLYETHYLENE GLYCOL 3350

REACTIONS (2)
  - COVID-19 [Unknown]
  - Product dose omission issue [Unknown]
